FAERS Safety Report 12233970 (Version 1)
Quarter: 2016Q2

REPORT INFORMATION
  Report Type: Spontaneous
  Country: US (occurrence: US)
  Receive Date: 20160404
  Receipt Date: 20160404
  Transmission Date: 20160815
  Serious: No
  Sender: FDA-Public Use
  Company Number: US-ELI_LILLY_AND_COMPANY-US201603011085

PATIENT
  Sex: Female

DRUGS (2)
  1. STRATTERA [Suspect]
     Active Substance: ATOMOXETINE HYDROCHLORIDE
     Dosage: 10 MG, UNK
     Route: 065
  2. STRATTERA [Suspect]
     Active Substance: ATOMOXETINE HYDROCHLORIDE
     Indication: ATTENTION DEFICIT/HYPERACTIVITY DISORDER
     Dosage: 40 MG, UNK
     Route: 065

REACTIONS (8)
  - Muscle twitching [Unknown]
  - Feeling cold [Unknown]
  - Feeling jittery [Unknown]
  - Nausea [Unknown]
  - Restless legs syndrome [Unknown]
  - Chills [Unknown]
  - Fatigue [Unknown]
  - Headache [Unknown]
